FAERS Safety Report 11038348 (Version 1)
Quarter: 2015Q2

REPORT INFORMATION
  Report Type: Spontaneous
  Country: US (occurrence: US)
  Receive Date: 20150416
  Receipt Date: 20150416
  Transmission Date: 20150821
  Serious: Yes (Hospitalization, Other)
  Sender: FDA-Public Use
  Company Number: US-UCBSA-2015011674

PATIENT
  Age: 83 Year
  Sex: Male
  Weight: 87 kg

DRUGS (10)
  1. AMLODIPINE [Suspect]
     Active Substance: AMLODIPINE BESYLATE
     Indication: PRODUCT USED FOR UNKNOWN INDICATION
     Dosage: UNK
  2. HYDRALAZINE [Suspect]
     Active Substance: HYDRALAZINE HYDROCHLORIDE
     Indication: PRODUCT USED FOR UNKNOWN INDICATION
     Dosage: UNKNOWN
  3. PREDNISONE. [Concomitant]
     Active Substance: PREDNISONE
     Indication: PROSTATE CANCER METASTATIC
     Dosage: UNK
     Dates: start: 20150113
  4. LUTEINIZING HORMONE-RELEASING HORMONE [Concomitant]
     Active Substance: LUTEINIZING HORMONE
     Indication: HORMONE THERAPY
     Dosage: UNK
     Dates: start: 201202, end: 201501
  5. ISOSORBIDE UNSPECIFIED [Suspect]
     Active Substance: ISOSORBIDE
     Indication: PRODUCT USED FOR UNKNOWN INDICATION
     Dosage: UNKNOWN
  6. ENZALUTAMIDE [Suspect]
     Active Substance: ENZALUTAMIDE
     Indication: PROSTATE CANCER METASTATIC
     Dosage: UNK
     Dates: start: 20150113
  7. FUROSEMIDE. [Suspect]
     Active Substance: FUROSEMIDE
     Indication: PRODUCT USED FOR UNKNOWN INDICATION
     Dosage: UNKNOWN
  8. AMIODARONE [Suspect]
     Active Substance: AMIODARONE
     Indication: PRODUCT USED FOR UNKNOWN INDICATION
  9. DILTIAZEM [Suspect]
     Active Substance: DILTIAZEM
     Indication: PRODUCT USED FOR UNKNOWN INDICATION
     Dosage: UNKNOWN
  10. ABIRATERONE ACETATE [Concomitant]
     Active Substance: ABIRATERONE ACETATE
     Indication: PROSTATE CANCER METASTATIC
     Dosage: UNK
     Dates: start: 20150113

REACTIONS (3)
  - Pulmonary oedema [Recovering/Resolving]
  - Cardiac failure [Recovering/Resolving]
  - Pleural effusion [Recovering/Resolving]

NARRATIVE: CASE EVENT DATE: 20150116
